FAERS Safety Report 22649376 (Version 1)
Quarter: 2023Q2

REPORT INFORMATION
  Report Type: Spontaneous
  Country: IT (occurrence: IT)
  Receive Date: 20230628
  Receipt Date: 20230628
  Transmission Date: 20230722
  Serious: Yes (Death)
  Sender: FDA-Public Use
  Company Number: IT-JNJFOC-20230656097

PATIENT
  Age: 31 Year
  Sex: Male

DRUGS (1)
  1. SPRAVATO [Suspect]
     Active Substance: ESKETAMINE
     Indication: Product used for unknown indication
     Dates: start: 2023

REACTIONS (2)
  - Completed suicide [Fatal]
  - Off label use [Unknown]

NARRATIVE: CASE EVENT DATE: 20230101
